FAERS Safety Report 11055301 (Version 1)
Quarter: 2015Q2

REPORT INFORMATION
  Report Type: Spontaneous
  Country: US (occurrence: None)
  Receive Date: 20150421
  Receipt Date: 20150421
  Transmission Date: 20150821
  Serious: Yes (Life-Threatening, Disabling, Other)
  Sender: FDA-Public Use
  Company Number: None

PATIENT
  Age: 44 Year
  Sex: Female
  Weight: 50.8 kg

DRUGS (23)
  1. MARINOL [Concomitant]
     Active Substance: DRONABINOL
  2. VITAMIN D [Concomitant]
     Active Substance: CHOLECALCIFEROL
  3. POTASSIUM [Concomitant]
     Active Substance: POTASSIUM
  4. BENADRYL [Concomitant]
     Active Substance: DIPHENHYDRAMINE HYDROCHLORIDE
  5. MORPHINE SULFATE. [Concomitant]
     Active Substance: MORPHINE SULFATE
  6. VITAMIN E [Concomitant]
     Active Substance: .ALPHA.-TOCOPHEROL
  7. MULT B COMPLEX [Concomitant]
  8. COREG [Concomitant]
     Active Substance: CARVEDILOL
  9. VOLTAREN [Concomitant]
     Active Substance: DICLOFENAC SODIUM
  10. CAL-MAG-ZINK [Concomitant]
  11. NIACIN. [Concomitant]
     Active Substance: NIACIN
  12. SYNTHROID [Concomitant]
     Active Substance: LEVOTHYROXINE SODIUM
  13. PREMARIN [Concomitant]
     Active Substance: ESTROGENS, CONJUGATED
  14. SILVER CENTRUM [Concomitant]
  15. LIDODERM [Concomitant]
     Active Substance: LIDOCAINE
  16. LEVOFLOXACIN. [Suspect]
     Active Substance: LEVOFLOXACIN
     Indication: CARDIAC FAILURE CONGESTIVE
     Dosage: 7 TABS 1-DAILY BY MOUTH
     Route: 048
     Dates: start: 20130907, end: 20130914
  17. VALIUM [Concomitant]
     Active Substance: DIAZEPAM
  18. VITAMIN C [Concomitant]
     Active Substance: ASCORBIC ACID
  19. LEVOFLOXACIN. [Suspect]
     Active Substance: LEVOFLOXACIN
     Indication: LOBAR PNEUMONIA
     Dosage: 7 TABS 1-DAILY BY MOUTH
     Route: 048
     Dates: start: 20130907, end: 20130914
  20. VTAMINS [Concomitant]
  21. FOLIC ACID. [Concomitant]
     Active Substance: FOLIC ACID
  22. MELATONIN [Concomitant]
     Active Substance: MELATONIN
  23. NORVASC [Concomitant]
     Active Substance: AMLODIPINE BESYLATE

REACTIONS (6)
  - Gait disturbance [None]
  - Nerve injury [None]
  - Wheelchair user [None]
  - Asthenia [None]
  - Paraesthesia [None]
  - Activities of daily living impaired [None]

NARRATIVE: CASE EVENT DATE: 20120907
